FAERS Safety Report 9908522 (Version 1)
Quarter: 2014Q1

REPORT INFORMATION
  Report Type: Spontaneous
  Country: US (occurrence: None)
  Receive Date: 20140214
  Receipt Date: 20140214
  Transmission Date: 20141002
  Serious: Yes (Hospitalization)
  Sender: FDA-Public Use
  Company Number: None

PATIENT
  Age: 84 Year
  Sex: Male
  Weight: 85.4 kg

DRUGS (4)
  1. HUMULIN 70/30 [Suspect]
     Indication: DIABETES MELLITUS
     Dosage: CHRONIC?20UNITS QAM SQ
  2. HUMULIN 70/30 [Suspect]
     Indication: DIABETES MELLITUS
     Dosage: CHRONIC?15UNITS QPM SQ
  3. COUMADIN [Concomitant]
  4. INSUR [Concomitant]

REACTIONS (3)
  - Confusional state [None]
  - Dysarthria [None]
  - Hypoglycaemia [None]
